FAERS Safety Report 9835212 (Version 2)
Quarter: 2014Q1

REPORT INFORMATION
  Report Type: Spontaneous
  Country: US (occurrence: US)
  Receive Date: 20140122
  Receipt Date: 20140122
  Transmission Date: 20141002
  Serious: No
  Sender: FDA-Public Use
  Company Number: US-BRISTOL-MYERS SQUIBB COMPANY-19862846

PATIENT
  Age: 47 Year
  Sex: Male

DRUGS (4)
  1. APIXABAN [Suspect]
     Dates: start: 20131117
  2. METOPROLOL [Concomitant]
     Dates: start: 20131115
  3. HEPARIN [Concomitant]
     Route: 042
     Dates: start: 20131115
  4. MELATONIN [Concomitant]
     Dosage: AT BEDTIME

REACTIONS (3)
  - Off label use [Unknown]
  - Myalgia [Recovered/Resolved]
  - Arthralgia [Recovered/Resolved]
